FAERS Safety Report 20986624 (Version 1)
Quarter: 2022Q2

REPORT INFORMATION
  Report Type: Spontaneous
  Country: NO (occurrence: NO)
  Receive Date: 20220621
  Receipt Date: 20220621
  Transmission Date: 20220721
  Serious: Yes (Other)
  Sender: FDA-Public Use
  Company Number: None

PATIENT

DRUGS (2)
  1. LAMICTAL [Interacting]
     Active Substance: LAMOTRIGINE
     Indication: Epilepsy
     Dosage: 75 MG, BID
     Route: 048
     Dates: start: 20050908
  2. VALPROIC ACID [Interacting]
     Active Substance: VALPROIC ACID
     Indication: Epilepsy
     Dosage: 750 MG, BID
     Route: 048

REACTIONS (2)
  - Atrial fibrillation [Unknown]
  - Drug interaction [Unknown]

NARRATIVE: CASE EVENT DATE: 20220331
